FAERS Safety Report 18188434 (Version 1)
Quarter: 2020Q3

REPORT INFORMATION
  Report Type: Spontaneous
  Country: SK (occurrence: SK)
  Receive Date: 20200824
  Receipt Date: 20200824
  Transmission Date: 20201103
  Serious: Yes (Other)
  Sender: FDA-Public Use
  Company Number: SK-MYLANLABS-2020M1072571

PATIENT
  Age: 53 Year
  Sex: Female

DRUGS (3)
  1. COLCHICINE. [Suspect]
     Active Substance: COLCHICINE
     Indication: PERICARDIAL DRAINAGE
     Dosage: UNK
  2. CISPLATIN. [Suspect]
     Active Substance: CISPLATIN
     Indication: LUNG ADENOCARCINOMA
     Dosage: UNK
     Dates: start: 20190527
  3. GEMCITABINE. [Suspect]
     Active Substance: GEMCITABINE
     Indication: LUNG ADENOCARCINOMA
     Dosage: UNK
     Dates: start: 20190527

REACTIONS (4)
  - Nausea [Unknown]
  - Vomiting [Unknown]
  - Dyspepsia [Recovering/Resolving]
  - Leukopenia [Unknown]
